FAERS Safety Report 12598880 (Version 1)
Quarter: 2016Q3

REPORT INFORMATION
  Report Type: Report from Study
  Country: US (occurrence: US)
  Receive Date: 20160726
  Receipt Date: 20160726
  Transmission Date: 20161109
  Serious: Yes (Hospitalization, Other)
  Sender: FDA-Public Use
  Company Number: US-BIOGEN-2016BI00269348

PATIENT
  Age: 63 Year
  Sex: Male

DRUGS (2)
  1. TECFIDERA [Suspect]
     Active Substance: DIMETHYL FUMARATE
     Dosage: MAINTENANCE DOSE
     Route: 048
     Dates: start: 20130913
  2. TECFIDERA [Suspect]
     Active Substance: DIMETHYL FUMARATE
     Indication: MULTIPLE SCLEROSIS
     Dosage: STARTING DOSE
     Route: 048
     Dates: start: 20130905, end: 20130912

REACTIONS (3)
  - Knee arthroplasty [Recovered/Resolved]
  - Prostate cancer [Not Recovered/Not Resolved]
  - Transurethral prostatectomy [Not Recovered/Not Resolved]

NARRATIVE: CASE EVENT DATE: 20160226
